FAERS Safety Report 7225076-8 (Version None)
Quarter: 2011Q1

REPORT INFORMATION
  Report Type: 
  Country: None (occurrence: None)
  Receive Date: 20110107
  Receipt Date: 20110107
  Transmission Date: 20110831
  Serious: No
  Sender: FDA-Public Use
  Company Number: None

PATIENT
  Age: 48 Year
  Sex: Female
  Weight: 77.5651 kg

DRUGS (2)
  1. OXYCONTIN [Suspect]
     Indication: MUSCULOSKELETAL DISORDER
     Dosage: 80MG EVERY 12 HOURS PO
     Route: 048
  2. OXYCONTIN [Suspect]
     Indication: MULTIPLE SCLEROSIS
     Dosage: 80MG EVERY 12 HOURS PO
     Route: 048

REACTIONS (3)
  - COUGH [None]
  - DRUG INEFFECTIVE [None]
  - PRODUCT SOLUBILITY ABNORMAL [None]
